FAERS Safety Report 13455771 (Version 1)
Quarter: 2017Q2

REPORT INFORMATION
  Report Type: Report from Study
  Country: BE (occurrence: BE)
  Receive Date: 20170419
  Receipt Date: 20170419
  Transmission Date: 20170830
  Serious: Yes (Death, Other)
  Sender: FDA-Public Use
  Company Number: BE-MYLANLABS-2017M1023683

PATIENT

DRUGS (3)
  1. PACLITAXEL. [Suspect]
     Active Substance: PACLITAXEL
     Indication: BREAST CANCER
     Dosage: 80 MG/M2 ON DAYS 1,8, AND 15 IN A CYCLE OF 28 DAYS
     Route: 042
  2. TRASTUZUMAB [Suspect]
     Active Substance: TRASTUZUMAB
     Dosage: 2 MG/KG ON DAYS 1,8, 15, AND 22 IN A CYCLE OF 28 DAYS
     Route: 042
  3. TRASTUZUMAB [Suspect]
     Active Substance: TRASTUZUMAB
     Indication: BREAST CANCER
     Dosage: 4 MG/KG AS LOADING DOSE; FOLLOWED BY 2 MG/KG ON DAYS 1,8, 15, AND 22 IN A CYCLE OF 28 DAYS
     Route: 042

REACTIONS (1)
  - Pneumonitis [Fatal]
